FAERS Safety Report 11411269 (Version 1)
Quarter: 2015Q3

REPORT INFORMATION
  Report Type: Spontaneous
  Country: US (occurrence: US)
  Receive Date: 20150821
  Receipt Date: 20150821
  Transmission Date: 20151125
  Serious: No
  Sender: FDA-Public Use
  Company Number: US-ELI_LILLY_AND_COMPANY-US201004007769

PATIENT
  Sex: Female

DRUGS (2)
  1. HUMULIN N [Suspect]
     Active Substance: INSULIN HUMAN
     Dosage: UNK, AS NEEDED
     Dates: start: 1995
  2. HUMULIN R [Suspect]
     Active Substance: INSULIN HUMAN
     Dosage: UNK, AS NEEDED
     Dates: start: 1995

REACTIONS (4)
  - Cataract [Unknown]
  - Visual acuity reduced [Not Recovered/Not Resolved]
  - Hypermetropia [Unknown]
  - Macular degeneration [Unknown]
